FAERS Safety Report 5131064-8 (Version None)
Quarter: 2006Q3

REPORT INFORMATION
  Report Type: 
  Country: None (occurrence: None)
  Receive Date: 20060829
  Receipt Date: 20060710
  Transmission Date: 20061208
  Serious: No
  Sender: FDA-Public Use
  Company Number: S06-USA-01622-01

PATIENT
  Age: 38 Year
  Sex: Male
  Weight: 48.0813 kg

DRUGS (4)
  1. CAMPRAL [Suspect]
     Indication: ALCOHOLISM
     Dosage: 666 MG TID PO
     Route: 048
     Dates: start: 20060916
  2. FLUOXETINE [Suspect]
     Indication: DEPRESSION
     Dosage: UNK
     Dates: start: 20051013, end: 20060428
  3. NARCOTIC (NOS) [Concomitant]
  4. PRILOSEC [Concomitant]

REACTIONS (7)
  - ABDOMINAL PAIN [None]
  - AMMONIA INCREASED [None]
  - HEADACHE [None]
  - NAUSEA [None]
  - PRURITUS [None]
  - TREMOR [None]
  - VOMITING [None]
